FAERS Safety Report 19480965 (Version 2)
Quarter: 2025Q4

REPORT INFORMATION
  Report Type: Spontaneous
  Country: CA (occurrence: CA)
  Receive Date: 20210630
  Receipt Date: 20251202
  Transmission Date: 20260118
  Serious: Yes (Hospitalization)
  Sender: MERCK SHARP & DOHME LLC
  Company Number: None

PATIENT
  Age: 58 Year
  Sex: Female
  Weight: 76 kg

DRUGS (7)
  1. TEMODAL [Suspect]
     Active Substance: TEMOZOLOMIDE
     Indication: Astrocytoma malignant
     Dosage: DOSE DESCRIPTION : 1 EVERY 1 DAYS, QD?DAILY DOSE : 140 MILLIGRAM?REGIMEN DOSE : 4760  MILLIGRAM
     Route: 048
     Dates: start: 20201016, end: 20201119
  2. GRAVOL [Concomitant]
     Active Substance: DIMENHYDRINATE
     Route: 065
  3. IMOVANE [Concomitant]
     Active Substance: ZOPICLONE
     Route: 065
  4. POLYETHYLENE GLYCOL 3350 [Concomitant]
     Active Substance: POLYETHYLENE GLYCOL 3350
     Dosage: DOSE DESCRIPTION : DOSAGE FORM: POWDER FOR SOLUTION ORAL.
     Route: 048
  5. PANTOPRAZOLE SODIUM [Concomitant]
     Active Substance: PANTOPRAZOLE SODIUM
     Dosage: DOSE DESCRIPTION : DOSAGE FORM:: TABLET (ENTERICCODED)
     Route: 048
  6. SYMBICORT [Concomitant]
     Active Substance: BUDESONIDE\FORMOTEROL FUMARATE DIHYDRATE
     Route: 065
  7. SYNTHROID [Concomitant]
     Active Substance: LEVOTHYROXINE SODIUM
     Dosage: DOSE DESCRIPTION : DOSAGE FORM: NOT SPECIFIED
     Route: 065

REACTIONS (1)
  - Febrile neutropenia [Recovered/Resolved]

NARRATIVE: CASE EVENT DATE: 20201201
